FAERS Safety Report 13636213 (Version 1)
Quarter: 2017Q2

REPORT INFORMATION
  Report Type: Spontaneous
  Country: US (occurrence: US)
  Receive Date: 20170531
  Receipt Date: 20170531
  Transmission Date: 20170830
  Serious: No
  Sender: FDA-Public Use
  Company Number: US-ASTELLAS-1795885

PATIENT
  Age: 78 Year
  Sex: Male

DRUGS (6)
  1. SIMVASTATIN. [Concomitant]
     Active Substance: SIMVASTATIN
  2. ASPIRIN. [Concomitant]
     Active Substance: ASPIRIN
  3. AMLODIPINE BESYLATE. [Concomitant]
     Active Substance: AMLODIPINE BESYLATE
  4. FLOMAX [Concomitant]
     Active Substance: TAMSULOSIN HYDROCHLORIDE
  5. TARCEVA [Suspect]
     Active Substance: ERLOTINIB HYDROCHLORIDE
     Indication: LUNG NEOPLASM MALIGNANT
     Route: 048
     Dates: start: 20160630
  6. NAPROXEN. [Concomitant]
     Active Substance: NAPROXEN

REACTIONS (10)
  - Rash [Recovering/Resolving]
  - Peripheral swelling [Unknown]
  - Lip swelling [Unknown]
  - Mouth swelling [Unknown]
  - Eye irritation [Not Recovered/Not Resolved]
  - Rhinorrhoea [Unknown]
  - Pruritus generalised [Not Recovered/Not Resolved]
  - Oral pruritus [Unknown]
  - Hypoaesthesia oral [Unknown]
  - Chest pain [Not Recovered/Not Resolved]

NARRATIVE: CASE EVENT DATE: 20160707
